FAERS Safety Report 13285643 (Version 1)
Quarter: 2017Q1

REPORT INFORMATION
  Report Type: Not Available
  Country: US (occurrence: US)
  Receive Date: 20170301
  Receipt Date: 20170301
  Transmission Date: 20170428
  Serious: No
  Sender: FDA-Public Use
  Company Number: US-MEDIMETRIKS-2015-US-000827

PATIENT
  Sex: Male

DRUGS (1)
  1. SYNALAR [Suspect]
     Active Substance: FLUOCINOLONE ACETONIDE
     Dosage: APPLIED TOPICALLY
     Route: 061
     Dates: start: 20151101

REACTIONS (6)
  - Application site irritation [Recovering/Resolving]
  - Rash [Recovering/Resolving]
  - Lethargy [Recovering/Resolving]
  - Genital rash [None]
  - Accidental exposure to product [None]
  - Headache [Recovering/Resolving]

NARRATIVE: CASE EVENT DATE: 20151121
